FAERS Safety Report 7926952-0 (Version None)
Quarter: 2011Q4

REPORT INFORMATION
  Report Type: 
  Country: None (occurrence: None)
  Receive Date: 20111118
  Receipt Date: 20111110
  Transmission Date: 20120403
  Serious: Yes (Other)
  Sender: FDA-Public Use
  Company Number: US-JNJFOC-20070903413

PATIENT
  Sex: Male
  Weight: 107.96 kg

DRUGS (4)
  1. SEROQUEL [Suspect]
     Indication: DEPRESSION
     Route: 065
  2. SEROQUEL [Suspect]
     Indication: ATTENTION DEFICIT/HYPERACTIVITY DISORDER
     Route: 065
  3. RISPERDAL [Suspect]
     Indication: BIPOLAR DISORDER
     Route: 065
  4. ZYPREXA [Suspect]
     Indication: BIPOLAR DISORDER
     Route: 065

REACTIONS (2)
  - DRUG INEFFECTIVE [None]
  - DIABETES MELLITUS [None]
